FAERS Safety Report 10043269 (Version 1)
Quarter: 2014Q1

REPORT INFORMATION
  Report Type: Report from Study
  Country: US (occurrence: US)
  Receive Date: 20140328
  Receipt Date: 20140328
  Transmission Date: 20141002
  Serious: Yes (Other)
  Sender: FDA-Public Use
  Company Number: PHEH2014US005810

PATIENT
  Sex: Female

DRUGS (2)
  1. TASIGNA [Suspect]
  2. TASIGNA [Suspect]
     Dosage: UNK
     Route: 048

REACTIONS (3)
  - Raynaud^s phenomenon [Unknown]
  - Fibromyalgia [Unknown]
  - Fatigue [Unknown]
